FAERS Safety Report 5130266-4 (Version None)
Quarter: 2006Q4

REPORT INFORMATION
  Report Type: 
  Country: None (occurrence: None)
  Receive Date: 20061018
  Receipt Date: 20061018
  Transmission Date: 20070319
  Serious: Yes (Hospitalization)
  Sender: FDA-Public Use
  Company Number: None

PATIENT
  Sex: Male
  Weight: 78.3 kg

DRUGS (7)
  1. GLIADEL [Suspect]
     Indication: GLIOBLASTOMA MULTIFORME
     Dosage: 7.7 MG PER WAFER ONCE IV
     Route: 042
     Dates: start: 20060802
  2. O6-BENZYLGUANINE (06BG) [Suspect]
     Indication: GLIOBLASTOMA MULTIFORME
     Dosage: 30 MG/M2 INFUSION X 5 DAYS IV
     Route: 042
     Dates: start: 20060802, end: 20060807
  3. KEPPRA [Concomitant]
  4. DECADRON [Concomitant]
  5. ZANTAC [Concomitant]
  6. TERAZOSIN HCL [Concomitant]
  7. DIAMOX SEQUELE [Concomitant]

REACTIONS (12)
  - BLOOD UREA INCREASED [None]
  - BRAIN SCAN ABNORMAL [None]
  - CONFUSIONAL STATE [None]
  - GAIT DISTURBANCE [None]
  - HAEMOGLOBIN ABNORMAL [None]
  - HYDROCEPHALUS [None]
  - HYPOKALAEMIA [None]
  - HYPONATRAEMIA [None]
  - INCONTINENCE [None]
  - INFUSION RELATED REACTION [None]
  - NERVOUS SYSTEM DISORDER [None]
  - THERAPY NON-RESPONDER [None]
